FAERS Safety Report 5960467-4 (Version None)
Quarter: 2008Q4

REPORT INFORMATION
  Report Type: 
  Country: None (occurrence: None)
  Receive Date: 20081120
  Receipt Date: 20081114
  Transmission Date: 20090506
  Serious: Yes (Other)
  Sender: FDA-Public Use
  Company Number: FR-B.I. PHARMACEUTICALS,INC./RIDGEFIELD-2008-DE-06989GD

PATIENT
  Age: 39 Year
  Sex: Male

DRUGS (3)
  1. CLONIDINE [Suspect]
     Indication: OBSESSIVE-COMPULSIVE DISORDER
  2. SELECTIVE SEROTONIN REUPTAKE INHIBITORS [Suspect]
     Indication: OBSESSIVE-COMPULSIVE DISORDER
  3. ANTIPSYCHOTICS [Suspect]
     Indication: OBSESSIVE-COMPULSIVE DISORDER

REACTIONS (1)
  - DRUG INEFFECTIVE [None]
